FAERS Safety Report 6361123-3 (Version None)
Quarter: 2009Q3

REPORT INFORMATION
  Report Type: 
  Country: None (occurrence: None)
  Receive Date: 20090918
  Receipt Date: 20090915
  Transmission Date: 20100115
  Serious: Yes (Death)
  Sender: FDA-Public Use
  Company Number: JP-JNJFOC-20090905273

PATIENT
  Age: 58 Year
  Sex: Male

DRUGS (7)
  1. RISPERDAL CONSTA [Suspect]
     Indication: SCHIZOPHRENIA
     Route: 030
  2. RISPERDAL [Suspect]
     Indication: SCHIZOPHRENIA
     Route: 048
  3. AKIRIDEN [Concomitant]
     Route: 048
  4. MAGMITT [Concomitant]
     Route: 048
  5. TRIHEXYPHENIDYL HCL [Concomitant]
     Route: 048
  6. CONTOMIN [Concomitant]
     Route: 048
  7. LITHIUM CARNONATE [Concomitant]
     Route: 048

REACTIONS (13)
  - ALTERED STATE OF CONSCIOUSNESS [None]
  - BLOOD CHLORIDE INCREASED [None]
  - BLOOD SODIUM INCREASED [None]
  - DEATH [None]
  - DECREASED APPETITE [None]
  - DEHYDRATION [None]
  - DIZZINESS [None]
  - GAIT DISTURBANCE [None]
  - GASTRIC PERFORATION [None]
  - HAEMORRHAGE [None]
  - HYPOTENSION [None]
  - INADEQUATE DIET [None]
  - SHOCK [None]
